FAERS Safety Report 5173783-3 (Version None)
Quarter: 2006Q4

REPORT INFORMATION
  Report Type: 
  Country: None (occurrence: None)
  Receive Date: 20061208
  Receipt Date: 20061208
  Transmission Date: 20070319
  Serious: Yes (Other)
  Sender: FDA-Public Use
  Company Number: None

PATIENT
  Sex: Male
  Weight: 85.7 kg

DRUGS (2)
  1. DOCETAXEL SONOFI-AVENTIS [Suspect]
     Indication: PROSTATE CANCER
     Dosage: 36 MG/M2 WEEKLY IV
     Route: 042
     Dates: start: 20031007, end: 20060617
  2. DW-101 NOVACES [Suspect]
     Indication: PROSTATE CANCER
     Dosage: 45 MCG WEEKLY PO
     Route: 048
     Dates: start: 20031007, end: 20050526

REACTIONS (2)
  - DYSPNOEA [None]
  - HEPATIC CIRRHOSIS [None]
